FAERS Safety Report 10563332 (Version 1)
Quarter: 2014Q4

REPORT INFORMATION
  Report Type: Spontaneous
  Country: US (occurrence: None)
  Receive Date: 20141103
  Receipt Date: 20141103
  Transmission Date: 20150529
  Serious: Yes (Hospitalization)
  Sender: FDA-Public Use
  Company Number: None

PATIENT
  Age: 53 Year
  Sex: Male

DRUGS (14)
  1. DAPTOMYCIN. [Concomitant]
     Active Substance: DAPTOMYCIN
  2. LEVOFLOXACIN. [Concomitant]
     Active Substance: LEVOFLOXACIN
  3. TPN [Suspect]
     Active Substance: AMINO ACIDS\DEXTROSE\ELECTROLYTES NOS\SOYBEAN OIL
     Route: 042
     Dates: start: 20140817, end: 20140823
  4. TPN [Suspect]
     Active Substance: AMINO ACIDS\DEXTROSE\ELECTROLYTES NOS\SOYBEAN OIL
     Indication: PARENTERAL NUTRITION
     Route: 042
     Dates: start: 20140817, end: 20140823
  5. DIPHENHYDRAMINE [Concomitant]
     Active Substance: DIPHENHYDRAMINE
  6. MEROPENEM. [Concomitant]
     Active Substance: MEROPENEM
  7. CASPOFUNGIN [Concomitant]
     Active Substance: CASPOFUNGIN
  8. METHYLPREDNISOLONE. [Concomitant]
     Active Substance: METHYLPREDNISOLONE
  9. CALCIUM GLUCONATE. [Concomitant]
     Active Substance: CALCIUM GLUCONATE
  10. DILTIAZEM [Concomitant]
     Active Substance: DILTIAZEM
  11. FENTANYL. [Concomitant]
     Active Substance: FENTANYL
  12. TOBRAMYCIN. [Concomitant]
     Active Substance: TOBRAMYCIN
  13. CEFEPIME [Concomitant]
     Active Substance: CEFEPIME\CEFEPIME HYDROCHLORIDE
  14. GANCICLOVIR. [Concomitant]
     Active Substance: GANCICLOVIR

REACTIONS (3)
  - Candida test positive [None]
  - Respiratory failure [None]
  - Candida infection [None]

NARRATIVE: CASE EVENT DATE: 20140825
